FAERS Safety Report 17334163 (Version 1)
Quarter: 2020Q1

REPORT INFORMATION
  Report Type: Spontaneous
  Country: FR (occurrence: FR)
  Receive Date: 20200128
  Receipt Date: 20200128
  Transmission Date: 20200409
  Serious: Yes (Hospitalization, Other)
  Sender: FDA-Public Use
  Company Number: FR-PFIZER INC-2020031361

PATIENT
  Age: 19 Year
  Sex: Male

DRUGS (3)
  1. CODOLIPRANE [Suspect]
     Active Substance: ACETAMINOPHEN\CODEINE PHOSPHATE
     Dosage: 4 DF, SINGLE 500 MG/30 MG
     Route: 048
     Dates: start: 20170313, end: 20170313
  2. TUSSIDANE [Suspect]
     Active Substance: DEXTROMETHORPHAN HYDROBROMIDE
     Dosage: 125 ML, SINGLE
     Route: 048
     Dates: start: 20170313, end: 20170313
  3. XANAX [Suspect]
     Active Substance: ALPRAZOLAM
     Dosage: 12 DF, SINGLE
     Route: 048
     Dates: start: 20170313, end: 20170313

REACTIONS (6)
  - Poisoning deliberate [Unknown]
  - Tachycardia [Recovered/Resolved]
  - Intentional product misuse [Unknown]
  - Ataxia [Recovered/Resolved]
  - Toxicity to various agents [Recovered/Resolved]
  - Somnolence [Recovered/Resolved]

NARRATIVE: CASE EVENT DATE: 20170313
